FAERS Safety Report 6217146-8 (Version None)
Quarter: 2009Q2

REPORT INFORMATION
  Report Type: 
  Country: None (occurrence: None)
  Receive Date: 20090606
  Receipt Date: 20090523
  Transmission Date: 20091009
  Serious: Yes (Hospitalization, Other)
  Sender: FDA-Public Use
  Company Number: US-ABBOTT-09P-163-0567082-00

PATIENT
  Sex: Female
  Weight: 65.83 kg

DRUGS (5)
  1. HUMIRA [Suspect]
     Indication: RHEUMATOID ARTHRITIS
     Route: 058
     Dates: start: 20070101, end: 20080301
  2. HUMIRA [Suspect]
     Dates: start: 20081201, end: 20090401
  3. HUMIRA [Suspect]
     Dates: start: 20090401
  4. RESTASIS [Concomitant]
     Indication: SJOGREN'S SYNDROME
  5. EVOVAX [Concomitant]
     Indication: SJOGREN'S SYNDROME

REACTIONS (11)
  - BLOOD POTASSIUM DECREASED [None]
  - DIARRHOEA [None]
  - DRUG DOSE OMISSION [None]
  - INJECTION SITE HAEMORRHAGE [None]
  - INJECTION SITE IRRITATION [None]
  - NASOPHARYNGITIS [None]
  - NAUSEA [None]
  - PRODUCT TASTE ABNORMAL [None]
  - PYREXIA [None]
  - RENAL FAILURE ACUTE [None]
  - VOMITING [None]
